FAERS Safety Report 6758802-2 (Version None)
Quarter: 2010Q2

REPORT INFORMATION
  Report Type: 
  Country: None (occurrence: None)
  Receive Date: 20100603
  Receipt Date: 20100521
  Transmission Date: 20101027
  Serious: Yes (Hospitalization)
  Sender: FDA-Public Use
  Company Number: A-NJ2010-36058

PATIENT
  Age: 58 Year
  Sex: Female
  Weight: 72.6 kg

DRUGS (11)
  1. TRACLEER [Suspect]
     Indication: PULMONARY ARTERIAL HYPERTENSION
     Dosage: 125 MG, BID, ORAL; 62.5 MG, BID, ORAL
     Route: 048
     Dates: start: 20090609, end: 20090710
  2. TRACLEER [Suspect]
     Indication: PULMONARY ARTERIAL HYPERTENSION
     Dosage: 125 MG, BID, ORAL; 62.5 MG, BID, ORAL
     Route: 048
     Dates: start: 20090711, end: 20100301
  3. JANUVIA [Suspect]
     Dosage: 1000 MG, QD, ORAL
     Route: 048
  4. EFFEXOR [Concomitant]
  5. ACIPHEX [Concomitant]
  6. COUMADIN [Concomitant]
  7. INSULIN (INSULIN) [Concomitant]
  8. OXYGEN (OXYGEN) [Concomitant]
  9. VITAMIN B12 [Concomitant]
  10. VOLTAREN [Concomitant]
  11. SYNTHROID [Concomitant]

REACTIONS (7)
  - ALANINE AMINOTRANSFERASE INCREASED [None]
  - ASPARTATE AMINOTRANSFERASE INCREASED [None]
  - ASTHENIA [None]
  - BLOOD ALKALINE PHOSPHATASE INCREASED [None]
  - DIARRHOEA [None]
  - DYSPNOEA [None]
  - LIVER FUNCTION TEST ABNORMAL [None]
